FAERS Safety Report 26056897 (Version 2)
Quarter: 2025Q4

REPORT INFORMATION
  Report Type: Spontaneous
  Country: CN (occurrence: CN)
  Receive Date: 20251118
  Receipt Date: 20251202
  Transmission Date: 20260118
  Serious: Yes (Life-Threatening, Hospitalization, Other)
  Sender: MSN LABORATORIES PRIVATE LIMITED
  Company Number: CN-MLMSERVICE-20251020-PI683611-00117-1

PATIENT

DRUGS (8)
  1. BORTEZOMIB [Suspect]
     Active Substance: BORTEZOMIB
     Indication: Plasma cell myeloma
     Dosage: CHEMOTHERAPY WITH BORTEZOMIB, LENALIDOMIDE, AND DEXAMETHASONE FOR ONE YEAR
     Route: 058
     Dates: start: 202010, end: 202110
  2. BORTEZOMIB [Suspect]
     Active Substance: BORTEZOMIB
     Dosage: BORTEZOMIB, 2MG (1.3MG/M2), SUBCUTANEOUS INJECTION, ONCE WEEKLY
     Route: 058
     Dates: start: 202207, end: 20230322
  3. BORTEZOMIB [Suspect]
     Active Substance: BORTEZOMIB
     Dosage: BORTEZOMIB, 2MG (1.3MG/M2), SUBCUTANEOUS INJECTION, ONCE WEEKLY
     Route: 058
     Dates: start: 202110
  4. DEXAMETHASONE [Suspect]
     Active Substance: DEXAMETHASONE
     Indication: Plasma cell myeloma
     Dosage: CHEMOTHERAPY WITH BORTEZOMIB, LENALIDOMIDE, AND DEXAMETHASONE FOR ONE YEAR
     Route: 048
     Dates: start: 202010, end: 202110
  5. DEXAMETHASONE [Suspect]
     Active Substance: DEXAMETHASONE
     Dosage: DEXAMETHASONE, 27 TABLETS (0.75MG PER TABLET), FOR ORAL USE
     Route: 048
     Dates: start: 202207, end: 20230322
  6. DEXAMETHASONE [Suspect]
     Active Substance: DEXAMETHASONE
     Dosage: DEXAMETHASONE, 27 TABLETS (0.75MG PER TABLET), FOR ORAL USE, ONCE A WEEK
     Route: 048
     Dates: start: 202110
  7. DARATUMUMAB [Suspect]
     Active Substance: DARATUMUMAB
     Indication: Plasma cell myeloma
     Route: 065
     Dates: start: 202207, end: 20230323
  8. LENALIDOMIDE [Suspect]
     Active Substance: LENALIDOMIDE
     Indication: Plasma cell myeloma
     Dosage: CHEMOTHERAPY WITH BORTEZOMIB, LENALIDOMIDE, AND DEXAMETHASONE FOR ONE YEAR
     Route: 065
     Dates: start: 202010, end: 202110

REACTIONS (4)
  - Hepatitis G [Recovered/Resolved]
  - Listeria sepsis [Recovered/Resolved]
  - Meningitis listeria [Recovered/Resolved]
  - Thrombocytopenia [Recovered/Resolved]

NARRATIVE: CASE EVENT DATE: 20230101
